FAERS Safety Report 25096729 (Version 1)
Quarter: 2025Q1

REPORT INFORMATION
  Report Type: Report from Study
  Country: CL (occurrence: CL)
  Receive Date: 20250319
  Receipt Date: 20250319
  Transmission Date: 20250409
  Serious: Yes (Hospitalization, Other)
  Sender: SANDOZ
  Company Number: CL-SANDOZ-SDZ2025CL016889

PATIENT
  Sex: Male

DRUGS (1)
  1. OMNITROPE [Suspect]
     Active Substance: SOMATROPIN
     Indication: Product used for unknown indication
     Dosage: 5.1 UL, QD
     Route: 058
     Dates: start: 20241111, end: 20250205

REACTIONS (2)
  - Foot fracture [Unknown]
  - Poor quality sleep [Unknown]
